FAERS Safety Report 8951639 (Version 2)
Quarter: 2012Q4

REPORT INFORMATION
  Report Type: 
  Country: US (occurrence: US)
  Receive Date: 20121204
  Receipt Date: 20121229
  Transmission Date: 20130627
  Serious: No
  Sender: FDA-Public Use
  Company Number: US-B.I. PHARMACEUTICALS,INC./RIDGEFIELD-2012-BI-01435BP

PATIENT
  Age: 71 None
  Sex: Female

DRUGS (11)
  1. PRADAXA [Suspect]
     Indication: ATRIAL FIBRILLATION
     Dosage: 300 mg
     Route: 048
     Dates: start: 2011, end: 201206
  2. PRADAXA [Suspect]
     Dosage: 150 mg
     Route: 048
     Dates: start: 201206
  3. PROPAFENONE [Concomitant]
     Indication: HEART RATE IRREGULAR
     Dosage: 675 mg
     Route: 048
     Dates: start: 2010
  4. ATENOLOL [Concomitant]
     Indication: HYPERTENSION
     Dosage: 25 mg
     Route: 048
     Dates: start: 2010
  5. HYDRALAZINE [Concomitant]
     Indication: HYPERTENSION
     Dosage: 50 mg
     Route: 048
     Dates: start: 2010
  6. XANAX [Concomitant]
     Indication: ANXIETY
     Dosage: 2 mg
     Route: 048
  7. AMBIEN [Concomitant]
     Indication: POOR QUALITY SLEEP
     Route: 048
  8. AMBIEN [Concomitant]
     Indication: FIBROMYALGIA
  9. HYDROCODONE [Concomitant]
     Indication: FIBROMYALGIA
     Route: 048
  10. FISH OIL [Concomitant]
  11. VITAMIN D [Concomitant]

REACTIONS (9)
  - Abdominal pain upper [Recovered/Resolved]
  - Dyspepsia [Recovered/Resolved]
  - Burn oesophageal [Recovered/Resolved]
  - Condition aggravated [Not Recovered/Not Resolved]
  - Gait disturbance [Not Recovered/Not Resolved]
  - Dizziness [Not Recovered/Not Resolved]
  - Creatinine renal clearance abnormal [Not Recovered/Not Resolved]
  - Mitral valve incompetence [Not Recovered/Not Resolved]
  - Dyspepsia [Recovered/Resolved]
